FAERS Safety Report 4893364-6 (Version None)
Quarter: 2006Q1

REPORT INFORMATION
  Report Type: 
  Country: None (occurrence: None)
  Receive Date: 20060125
  Receipt Date: 20060125
  Transmission Date: 20060701
  Serious: Yes (Hospitalization)
  Sender: FDA-Public Use
  Company Number: None

PATIENT
  Sex: Female
  Weight: 52.6173 kg

DRUGS (6)
  1. IRINOTECAN HCL [Suspect]
     Indication: GASTRIC CANCER
     Dosage: 75 MG IV , D1 + D8 Q 3 WKS
     Route: 042
     Dates: start: 20051109, end: 20050118
  2. CISPLATIN [Suspect]
     Indication: GASTRIC CANCER
     Dosage: 38 MG IV M D1 AND D8 Q3 WKS
     Route: 042
     Dates: start: 20051109, end: 20060118
  3. AMBIEN [Concomitant]
  4. PREVACID [Concomitant]
  5. PROCRIT [Concomitant]
  6. MYCELEX [Concomitant]

REACTIONS (3)
  - DEEP VEIN THROMBOSIS [None]
  - NEUTROPENIA [None]
  - THROMBOCYTOPENIA [None]
